FAERS Safety Report 5314257-6 (Version None)
Quarter: 2007Q2

REPORT INFORMATION
  Report Type: 
  Country: None (occurrence: None)
  Receive Date: 20070425
  Receipt Date: 20070411
  Transmission Date: 20071010
  Serious: Yes (Death, Life-Threatening)
  Sender: FDA-Public Use
  Company Number: CLOF-10476

PATIENT
  Age: 73 Year
  Sex: Male
  Weight: 81.2 kg

DRUGS (30)
  1. CLOFARABINE (BLINDED) [Suspect]
     Indication: MYELOID LEUKAEMIA
     Dosage: 80 MG QD X 5 IV
     Route: 042
     Dates: start: 20070309, end: 20070312
  2. CYTARABINE [Suspect]
     Indication: MYELOID LEUKAEMIA
     Dosage: 2000 MG QD X 5 IV
     Route: 042
     Dates: start: 20070310, end: 20070312
  3. BENADRYL [Concomitant]
  4. LASIX [Concomitant]
  5. SEVELAMER [Concomitant]
  6. PREVASTATIN [Concomitant]
  7. NYSTATIN [Concomitant]
  8. K-DUR 10 [Concomitant]
  9. FLOMAX [Concomitant]
  10. CITALOPRAM HYDROBROMIDE [Concomitant]
  11. PSYLLIUM PACK [Concomitant]
  12. CANCIDAS [Concomitant]
  13. CELEXA [Concomitant]
  14. ROCEPHIN [Concomitant]
  15. PROSCAR [Concomitant]
  16. DIOVAN [Concomitant]
  17. HYDROCHLOROTHIAZIDE [Concomitant]
  18. ZOCOR [Concomitant]
  19. VALTREX [Concomitant]
  20. CEFTRIAXONE [Concomitant]
  21. FINASTERIDE [Concomitant]
  22. OMEPRAZOLE [Concomitant]
  23. TRAZODONE HCL [Concomitant]
  24. VALSARTAN [Concomitant]
  25. VORICONAZOLE [Concomitant]
  26. NITROGLYCERIN [Concomitant]
  27. CARVEDILOL [Concomitant]
  28. HYDREA [Concomitant]
  29. VITAMIN K [Concomitant]
  30. PRILOSEC [Concomitant]

REACTIONS (7)
  - ABDOMINAL PAIN [None]
  - ATRIAL FIBRILLATION [None]
  - ELECTROCARDIOGRAM QT CORRECTED INTERVAL PROLONGED [None]
  - ELECTROCARDIOGRAM QT PROLONGED [None]
  - REFUSAL OF TREATMENT BY PATIENT [None]
  - SINUS ARRHYTHMIA [None]
  - SINUS BRADYCARDIA [None]
